FAERS Safety Report 16206380 (Version 1)
Quarter: 2019Q2

REPORT INFORMATION
  Report Type: Spontaneous
  Country: US (occurrence: US)
  Receive Date: 20190312
  Receipt Date: 20190312
  Transmission Date: 20190711
  Serious: Yes (Disabling)
  Sender: FDA-Public Use
  Company Number: None

PATIENT
  Age: 48 Year
  Sex: Male
  Weight: 72.57 kg

DRUGS (2)
  1. ARMOUR THYROID [Suspect]
     Active Substance: THYROID, PORCINE
  2. LEVOTHYROXINE. [Suspect]
     Active Substance: LEVOTHYROXINE
     Indication: THYROID FUNCTION TEST ABNORMAL
     Dosage: ?          QUANTITY:1 DF DOSAGE FORM;?
     Route: 048
     Dates: start: 1998, end: 20180808

REACTIONS (10)
  - Blood cholesterol increased [None]
  - Pain [None]
  - Sensation of foreign body [None]
  - Throat tightness [None]
  - Blood pressure increased [None]
  - Chest pain [None]
  - Gluten sensitivity [None]
  - Product formulation issue [None]
  - Neck pain [None]
  - Thyroid function test abnormal [None]

NARRATIVE: CASE EVENT DATE: 1998
